FAERS Safety Report 19143792 (Version 1)
Quarter: 2021Q2

REPORT INFORMATION
  Report Type: Spontaneous
  Country: CA (occurrence: CA)
  Receive Date: 20210416
  Receipt Date: 20210416
  Transmission Date: 20210717
  Serious: Yes (Other)
  Sender: FDA-Public Use
  Company Number: CA-NEBO-PC006756

PATIENT
  Age: 84 Year
  Sex: Female
  Weight: 63 kg

DRUGS (9)
  1. MONOFERRIC [Suspect]
     Active Substance: FERRIC DERISOMALTOSE
     Indication: IRON DEFICIENCY ANAEMIA
     Route: 042
  2. LUMIGAN [Concomitant]
     Active Substance: BIMATOPROST
  3. LANCORA [Concomitant]
     Active Substance: IVABRADINE
  4. ASA [Concomitant]
     Active Substance: ASPIRIN
  5. ROSUVASTATIN. [Concomitant]
     Active Substance: ROSUVASTATIN
  6. ENTRESTO [Concomitant]
     Active Substance: SACUBITRIL\VALSARTAN
  7. FERROUS SULFATE. [Concomitant]
     Active Substance: FERROUS SULFATE
  8. VITAMIN D [Concomitant]
     Active Substance: VITAMIN D NOS
  9. CARVEDILOL. [Concomitant]
     Active Substance: CARVEDILOL

REACTIONS (9)
  - Presyncope [Recovered/Resolved]
  - Metabolic acidosis [Recovered/Resolved]
  - Nausea [Recovered/Resolved]
  - Hypotension [Recovered/Resolved]
  - Anaphylactic shock [Recovered/Resolved]
  - Asthenia [Recovered/Resolved]
  - Troponin increased [Recovered/Resolved]
  - Hyperkalaemia [Recovered/Resolved]
  - Renal tubular acidosis [Recovered/Resolved]
